FAERS Safety Report 4886389-8 (Version None)
Quarter: 2006Q1

REPORT INFORMATION
  Report Type: 
  Country: None (occurrence: None)
  Receive Date: 20060120
  Receipt Date: 20051031
  Transmission Date: 20060701
  Serious: Yes (Disabling, Other)
  Sender: FDA-Public Use
  Company Number: US-MERCK-0511USA00137

PATIENT
  Sex: Male
  Weight: 113 kg

DRUGS (11)
  1. VIOXX [Suspect]
     Indication: ARTHRITIS
     Route: 048
     Dates: start: 20000501, end: 20030901
  2. VIOXX [Suspect]
     Indication: MONARTHRITIS
     Route: 048
     Dates: start: 20000501, end: 20030901
  3. ISOSORBIDE [Concomitant]
     Indication: HEART RATE
     Route: 065
  4. NEXIUM [Concomitant]
     Indication: GASTRITIS
     Route: 065
  5. TRICOR [Concomitant]
     Route: 065
  6. CEFZIL [Concomitant]
     Route: 065
  7. TENORMIN [Concomitant]
     Route: 065
     Dates: start: 20010206
  8. NITRO-DUR [Concomitant]
     Route: 065
  9. DIGITEK [Concomitant]
     Route: 065
  10. SKELAXIN [Concomitant]
     Route: 065
     Dates: start: 20021101
  11. TYLENOL (CAPLET) [Concomitant]
     Route: 065

REACTIONS (17)
  - ANXIETY [None]
  - ASTHENIA [None]
  - BLOOD PRESSURE INCREASED [None]
  - CHEST PAIN [None]
  - DISTURBANCE IN ATTENTION [None]
  - GASTRIC ULCER [None]
  - GASTROOESOPHAGEAL REFLUX DISEASE [None]
  - HYPERLIPIDAEMIA [None]
  - HYPERTENSION [None]
  - MENISCUS LESION [None]
  - MYOCARDIAL INFARCTION [None]
  - NAUSEA [None]
  - PAIN IN EXTREMITY [None]
  - PANIC DISORDER [None]
  - PEPTIC ULCER [None]
  - SUICIDAL IDEATION [None]
  - TACHYCARDIA [None]
